FAERS Safety Report 23058481 (Version 5)
Quarter: 2025Q3

REPORT INFORMATION
  Report Type: Report from Study
  Country: CA (occurrence: CA)
  Receive Date: 20231012
  Receipt Date: 20250923
  Transmission Date: 20251020
  Serious: Yes (Other)
  Sender: CELLTRION
  Company Number: CA-CELLTRION INC.-2023CA018969

PATIENT

DRUGS (27)
  1. ADALIMUMAB-AATY [Suspect]
     Active Substance: ADALIMUMAB-AATY
     Indication: Crohn^s disease
     Dosage: 40 MG , WEEKS-WEEKLY , SUBCUTANEOUS
     Route: 058
     Dates: start: 202307
  2. ADALIMUMAB-AATY [Suspect]
     Active Substance: ADALIMUMAB-AATY
     Dosage: 40 MG , WEEKS-WEEKLY , SUBCUTANEOUS
     Route: 058
     Dates: start: 20230802, end: 2025
  3. ADALIMUMAB-AATY [Suspect]
     Active Substance: ADALIMUMAB-AATY
     Dosage: 40 MILLIGRAM, 1 EVERY 1 WEEK
     Route: 058
  4. ADALIMUMAB-AATY [Suspect]
     Active Substance: ADALIMUMAB-AATY
     Dosage: 40 MILLIGRAM, 1 EVERY 1 WEEK
     Route: 058
  5. ADALIMUMAB-AATY [Suspect]
     Active Substance: ADALIMUMAB-AATY
     Dosage: 80 MG SCWEEKLY
     Route: 058
     Dates: start: 20230802
  6. ACETAMINOPHEN [Concomitant]
     Active Substance: ACETAMINOPHEN
  7. LIPIDIL [Concomitant]
     Active Substance: FENOFIBRATE
  8. LIPIDIL [Concomitant]
     Active Substance: FENOFIBRATE
  9. PANTOPRAZOLE MAGNESIUM [Concomitant]
     Active Substance: PANTOPRAZOLE MAGNESIUM
  10. PANTOPRAZOLE MAGNESIUM [Concomitant]
     Active Substance: PANTOPRAZOLE MAGNESIUM
     Route: 065
  11. MICARDIS [Concomitant]
     Active Substance: TELMISARTAN
  12. MICARDIS [Concomitant]
     Active Substance: TELMISARTAN
  13. MYRBETRIQ [Concomitant]
     Active Substance: MIRABEGRON
  14. MYRBETRIQ [Concomitant]
     Active Substance: MIRABEGRON
  15. VITAMIN D NOS [Concomitant]
     Active Substance: CHOLECALCIFEROL\ERGOCALCIFEROL
  16. VITAMIN D NOS [Concomitant]
     Active Substance: CHOLECALCIFEROL\ERGOCALCIFEROL
  17. GLUTAMINE [LEVOGLUTAMIDE] [Concomitant]
  18. GLUTAMINE [LEVOGLUTAMIDE] [Concomitant]
  19. CYANOCOBALAMIN [Concomitant]
     Active Substance: CYANOCOBALAMIN
  20. MELATONIN [Concomitant]
     Active Substance: MELATONIN
     Indication: Insomnia
  21. MELATONIN [Concomitant]
     Active Substance: MELATONIN
     Indication: Insomnia
  22. IBUPROFEN [Concomitant]
     Active Substance: IBUPROFEN
     Indication: Pain
  23. IBUPROFEN [Concomitant]
     Active Substance: IBUPROFEN
     Indication: Pain
  24. ACETAMINOPHEN [Concomitant]
     Active Substance: ACETAMINOPHEN
  25. CYANOCOBALAMIN [Concomitant]
     Active Substance: CYANOCOBALAMIN
  26. ACETAMINOPHEN [Concomitant]
     Active Substance: ACETAMINOPHEN
  27. CYANOCOBALAMIN [Concomitant]
     Active Substance: CYANOCOBALAMIN

REACTIONS (4)
  - Crohn^s disease [Not Recovered/Not Resolved]
  - Ill-defined disorder [Not Recovered/Not Resolved]
  - Product substitution issue [Not Recovered/Not Resolved]
  - Intentional product use issue [Not Recovered/Not Resolved]
